FAERS Safety Report 16389854 (Version 1)
Quarter: 2019Q2

REPORT INFORMATION
  Report Type: Spontaneous
  Country: US (occurrence: US)
  Receive Date: 20190604
  Receipt Date: 20190604
  Transmission Date: 20190711
  Serious: Yes (Other)
  Sender: FDA-Public Use
  Company Number: US-BAYER-2019-105253

PATIENT
  Sex: Female

DRUGS (5)
  1. MAGNEVIST [Suspect]
     Active Substance: GADOPENTETATE DIMEGLUMINE
     Indication: NUCLEAR MAGNETIC RESONANCE IMAGING
     Dosage: UNK
     Dates: start: 20140624, end: 20140624
  2. MAGNEVIST [Suspect]
     Active Substance: GADOPENTETATE DIMEGLUMINE
     Indication: NUCLEAR MAGNETIC RESONANCE IMAGING
     Dosage: UNK UNK, ONCE
     Dates: start: 20170307, end: 20170307
  3. MAGNEVIST [Suspect]
     Active Substance: GADOPENTETATE DIMEGLUMINE
     Indication: ANGIOGRAM
     Dosage: UNK
     Dates: start: 20150602, end: 20150602
  4. MAGNEVIST [Suspect]
     Active Substance: GADOPENTETATE DIMEGLUMINE
     Indication: NUCLEAR MAGNETIC RESONANCE IMAGING
     Dosage: UNK
     Dates: start: 20160524, end: 20160524
  5. OPTIMARK [Suspect]
     Active Substance: GADOVERSETAMIDE
     Dosage: UNK UNK, ONCE
     Dates: start: 20150409, end: 20150409

REACTIONS (7)
  - Injury [None]
  - Nontherapeutic agent urine positive [None]
  - Quality of life decreased [None]
  - Pain [None]
  - Anxiety [None]
  - Anhedonia [None]
  - Contrast media deposition [None]

NARRATIVE: CASE EVENT DATE: 20180907
